FAERS Safety Report 9242955 (Version 1)
Quarter: 2013Q2

REPORT INFORMATION
  Report Type: Spontaneous
  Country: MT (occurrence: MT)
  Receive Date: 20130419
  Receipt Date: 20130419
  Transmission Date: 20140414
  Serious: Yes (Other)
  Sender: FDA-Public Use
  Company Number: MT-B.I. PHARMACEUTICALS,INC./RIDGEFIELD-2013-UK-00870UK

PATIENT
  Age: 62 Year
  Sex: Male

DRUGS (7)
  1. PRADAXA [Suspect]
     Indication: CEREBROVASCULAR ACCIDENT PROPHYLAXIS
     Dosage: 220 MG
     Route: 048
  2. PRADAXA [Suspect]
     Indication: ATRIAL FIBRILLATION
  3. AMIODARONE [Concomitant]
     Dosage: 100 MG
  4. AVODART [Concomitant]
  5. NATRILIX [Concomitant]
  6. COVERSYL [Concomitant]
  7. DIGOXIN [Concomitant]

REACTIONS (1)
  - Atrial fibrillation [Unknown]
